FAERS Safety Report 9051410 (Version 1)
Quarter: 2013Q1

REPORT INFORMATION
  Report Type: Spontaneous
  Country: US (occurrence: US)
  Receive Date: 20130206
  Receipt Date: 20130206
  Transmission Date: 20140127
  Serious: No
  Sender: FDA-Public Use
  Company Number: US-ALLERGAN-1206228US

PATIENT
  Age: 64 Year
  Sex: Male

DRUGS (2)
  1. RESTASIS [Suspect]
     Indication: DRY EYE
     Dosage: UNK
     Route: 047
     Dates: start: 201202
  2. RESTASIS [Suspect]
     Dosage: UNK
     Route: 047
     Dates: start: 2010

REACTIONS (1)
  - Eye irritation [Recovered/Resolved]
